FAERS Safety Report 6926451-9 (Version None)
Quarter: 2010Q3

REPORT INFORMATION
  Report Type: 
  Country: None (occurrence: None)
  Receive Date: 20100816
  Receipt Date: 20100802
  Transmission Date: 20110219
  Serious: Yes (Other)
  Sender: FDA-Public Use
  Company Number: DE-BAYER-201031244GPV

PATIENT
  Age: 44 Year
  Sex: Female
  Weight: 91 kg

DRUGS (2)
  1. BETAFERON [Suspect]
     Indication: MULTIPLE SCLEROSIS
     Route: 058
     Dates: end: 20090701
  2. BETAFERON [Suspect]
     Route: 058
     Dates: start: 20100101, end: 20100601

REACTIONS (4)
  - ANAEMIA [None]
  - MENORRHAGIA [None]
  - THROMBOCYTOSIS [None]
  - THROMBOSIS [None]
